FAERS Safety Report 9856083 (Version 1)
Quarter: 2014Q1

REPORT INFORMATION
  Report Type: Spontaneous
  Country: ES (occurrence: ES)
  Receive Date: 20140130
  Receipt Date: 20140130
  Transmission Date: 20141002
  Serious: Yes (Other)
  Sender: FDA-Public Use
  Company Number: PHHY2014ES008984

PATIENT
  Sex: Female

DRUGS (2)
  1. CICLOSPORIN [Suspect]
     Dosage: 4.3 MG/KG, DAILY
  2. PREDNISONE [Suspect]
     Dosage: 10 MG, DAILY

REACTIONS (2)
  - Foetal death [Unknown]
  - Exposure during pregnancy [Unknown]
